FAERS Safety Report 5268647-0 (Version None)
Quarter: 2007Q1

REPORT INFORMATION
  Report Type: 
  Country: None (occurrence: None)
  Receive Date: 20070315
  Receipt Date: 20070315
  Transmission Date: 20070707
  Serious: Yes (Death)
  Sender: FDA-Public Use
  Company Number: None

PATIENT
  Sex: Female
  Weight: 68 kg

DRUGS (7)
  1. CYCLOPHOSPHAMIDE [Suspect]
     Dosage: 3000 MG
     Dates: end: 20070302
  2. DOCETAXEL [Suspect]
     Dosage: 762 MG
     Dates: end: 20070302
  3. DOXORUBICIN HYDROCHLORIDE [Suspect]
     Dosage: 300 MG
     Dates: end: 20070302
  4. ALTACE [Concomitant]
  5. HYDROCHLOROTHIAZIDE [Concomitant]
  6. LONG ACTING INSULIN [Concomitant]
  7. VYTORIN [Concomitant]

REACTIONS (1)
  - MYOCARDIAL INFARCTION [None]
